FAERS Safety Report 11243633 (Version 1)
Quarter: 2015Q3

REPORT INFORMATION
  Report Type: Spontaneous
  Country: US (occurrence: None)
  Receive Date: 20150702
  Receipt Date: 20150702
  Transmission Date: 20151125
  Serious: Yes (Hospitalization, Disabling)
  Sender: FDA-Public Use
  Company Number: None

PATIENT
  Age: 48 Year
  Sex: Female
  Weight: 111.13 kg

DRUGS (2)
  1. TRULICITY [Suspect]
     Active Substance: DULAGLUTIDE
     Indication: GLUCOSE TOLERANCE IMPAIRED
     Route: 058
     Dates: start: 20141222, end: 20150417
  2. DAILY MULTI VITAMIN [Concomitant]

REACTIONS (4)
  - Wound [None]
  - Impaired healing [None]
  - Condition aggravated [None]
  - Glycosylated haemoglobin increased [None]
